FAERS Safety Report 12625432 (Version 3)
Quarter: 2017Q1

REPORT INFORMATION
  Report Type: Report from Study
  Country: DE (occurrence: DE)
  Receive Date: 20160805
  Receipt Date: 20170315
  Transmission Date: 20170428
  Serious: Yes (Hospitalization)
  Sender: FDA-Public Use
  Company Number: DE-ROCHE-1807931

PATIENT
  Age: 61 Year
  Sex: Female
  Weight: 53.7 kg

DRUGS (9)
  1. PULMICORT TURBUHALER [Concomitant]
     Active Substance: BUDESONIDE
     Indication: DYSPNOEA
     Route: 065
     Dates: start: 20160812
  2. PANTOZOL [Concomitant]
     Active Substance: PANTOPRAZOLE SODIUM
  3. ACICLOVIR [Concomitant]
     Active Substance: ACYCLOVIR
     Indication: LIP INFECTION
     Route: 065
     Dates: start: 20160820
  4. ULTIBRO [Concomitant]
     Active Substance: GLYCOPYRRONIUM\INDACATEROL
     Indication: DYSPNOEA
     Route: 065
     Dates: start: 20160812
  5. HEPARIN [Concomitant]
     Active Substance: HEPARIN SODIUM
     Indication: THROMBOSIS
  6. NAB-PACLITAXEL [Suspect]
     Active Substance: PACLITAXEL
     Indication: BREAST CANCER METASTATIC
     Dosage: MOST RECENT DOSE ON 20/JUL/2016 ?PROTOCOL DOSE
     Route: 042
     Dates: start: 20160603
  7. ATEZOLIZUMAB [Suspect]
     Active Substance: ATEZOLIZUMAB
     Indication: BREAST CANCER METASTATIC
     Dosage: MOST RECENT DOSE ADMINISTERED WAS 840MG ON 13/JUL/2016
     Route: 042
     Dates: start: 20160603
  8. ACETYLCYSTEINE. [Concomitant]
     Active Substance: ACETYLCYSTEINE
     Dosage: ACC 600
     Route: 065
  9. VALORON (GERMANY) [Concomitant]
     Indication: PAIN

REACTIONS (1)
  - Autoimmune hepatitis [Recovered/Resolved]

NARRATIVE: CASE EVENT DATE: 20160801
